FAERS Safety Report 7711208-1 (Version None)
Quarter: 2011Q3

REPORT INFORMATION
  Report Type: 
  Country: None (occurrence: None)
  Receive Date: 20110826
  Receipt Date: 20110816
  Transmission Date: 20111222
  Serious: No
  Sender: FDA-Public Use
  Company Number: US-BIOGENIDEC-2011BI032074

PATIENT
  Sex: Female

DRUGS (2)
  1. AMPYRA [Concomitant]
     Indication: MOBILITY DECREASED
  2. TYSABRI [Suspect]
     Indication: MULTIPLE SCLEROSIS
     Route: 042
     Dates: start: 20110810

REACTIONS (1)
  - DRUG INEFFECTIVE [None]
